FAERS Safety Report 4543213-0 (Version None)
Quarter: 2005Q1

REPORT INFORMATION
  Report Type: 
  Country: None (occurrence: None)
  Receive Date: 20050103
  Receipt Date: 20041222
  Transmission Date: 20050727
  Serious: Yes (Hospitalization)
  Sender: FDA-Public Use
  Company Number: 200422372GDDC

PATIENT
  Age: 45 Year
  Sex: Female

DRUGS (1)
  1. MINIRIN [Suspect]
     Indication: DIABETES INSIPIDUS
     Route: 045

REACTIONS (7)
  - BLOOD CALCIUM DECREASED [None]
  - BLOOD POTASSIUM DECREASED [None]
  - HAEMATOMA [None]
  - HEADACHE [None]
  - LOSS OF CONSCIOUSNESS [None]
  - MALAISE [None]
  - WOUND [None]
